FAERS Safety Report 5864514-X (Version None)
Quarter: 2008Q3

REPORT INFORMATION
  Report Type: 
  Country: None (occurrence: None)
  Receive Date: 20080829
  Receipt Date: 20080822
  Transmission Date: 20090109
  Serious: Yes (Other)
  Sender: FDA-Public Use
  Company Number: US-JNJFOC-20080606859

PATIENT
  Sex: Male

DRUGS (5)
  1. INVEGA [Suspect]
     Indication: BIPOLAR DISORDER
     Route: 048
  2. XANAX [Concomitant]
     Indication: ANXIETY
  3. DEPAKOTE [Concomitant]
     Indication: BIPOLAR DISORDER
  4. PAXIL [Concomitant]
     Indication: DEPRESSION
  5. PAXIL [Concomitant]
     Indication: BIPOLAR DISORDER

REACTIONS (1)
  - SPASMODIC DYSPHONIA [None]
